FAERS Safety Report 6371547-6 (Version None)
Quarter: 2009Q3

REPORT INFORMATION
  Report Type: 
  Country: None (occurrence: None)
  Receive Date: 20090923
  Receipt Date: 20070928
  Transmission Date: 20100115
  Serious: Yes (Hospitalization)
  Sender: FDA-Public Use
  Company Number: US-ASTRAZENECA-2007UW18791

PATIENT
  Age: 19630 Day
  Sex: Male
  Weight: 124.3 kg

DRUGS (24)
  1. SEROQUEL [Suspect]
     Route: 048
     Dates: start: 20020214
  2. ACTOS [Concomitant]
     Route: 048
  3. HUMULIN R [Concomitant]
     Dosage: STRENGTH-100 UNITS PER 1 ML
  4. MAVIK [Concomitant]
     Route: 048
  5. LORTAB [Concomitant]
     Indication: PAIN
     Dosage: 5 MG/500 MG EVERY SIX HOUR, 7.5 MG EVERY 4-6 HOUR
     Route: 048
  6. ZOCOR [Concomitant]
     Indication: HYPERCHOLESTEROLAEMIA
     Route: 048
  7. HYDROCHLOROTHIAZIDE [Concomitant]
     Route: 048
  8. HYDROCHLOROTHIAZIDE [Concomitant]
     Route: 048
  9. MICARDIS [Concomitant]
     Dosage: 40 MG ONCE DAILY, 80 MG ONCE DAILY
     Route: 048
  10. CLONIDINE HCL [Concomitant]
     Indication: BLOOD PRESSURE
     Dosage: 0.1 MG TABLETS 1/2 TAB PO WHEN AWAKEN, 1/2 WAY THROUGH WORK SHIFT, WHEN GOING TO BED
     Route: 048
  11. ASPIRIN [Concomitant]
     Route: 048
  12. NOVOLIN 70/30 [Concomitant]
     Dosage: 24 UNITS AM, 10 UNITS PM
     Route: 058
  13. RISPERDAL [Concomitant]
     Dosage: 2 MG TABLET QD, 3 MG TABLET QD
     Route: 048
  14. VYTORIN [Concomitant]
     Dosage: 10/40 MG 1 TABLET DAILY IN THE EVENING
     Route: 048
  15. IBUPROFEN [Concomitant]
     Route: 048
  16. GABAPENTIN [Concomitant]
  17. VERAPAMIL [Concomitant]
  18. ZESTRIL [Concomitant]
  19. GLUCAGON [Concomitant]
     Dosage: 1 MG/ML
     Route: 058
  20. BIAXIN [Concomitant]
  21. VIOXX [Concomitant]
  22. ZYPREXA [Concomitant]
  23. PROVIGIL [Concomitant]
     Indication: OBESITY
     Dosage: 100 MG ONCE DAILY, 200 MG ONCE DAILY
     Route: 048
  24. PROVIGIL [Concomitant]
     Indication: SLEEP APNOEA SYNDROME
     Dosage: 100 MG ONCE DAILY, 200 MG ONCE DAILY
     Route: 048

REACTIONS (1)
  - DIABETES MELLITUS [None]
